FAERS Safety Report 5585960-8 (Version None)
Quarter: 2007Q4

REPORT INFORMATION
  Report Type: 
  Country: None (occurrence: None)
  Receive Date: 20071203
  Receipt Date: 20060724
  Transmission Date: 20080405
  Serious: Yes (Other)
  Sender: FDA-Public Use
  Company Number: 2007022324

PATIENT

DRUGS (2)
  1. ZYVOX [Suspect]
  2. DOPAMINERGIC AGENTS (DOPAMINERGIC AGENTS) [Suspect]

REACTIONS (1)
  - HYPERTENSION [None]
